FAERS Safety Report 12238337 (Version 1)
Quarter: 2016Q2

REPORT INFORMATION
  Report Type: Spontaneous
  Country: US (occurrence: None)
  Receive Date: 20160404
  Receipt Date: 20160404
  Transmission Date: 20160815
  Serious: No
  Sender: FDA-Public Use
  Company Number: None

PATIENT
  Age: 57 Year
  Sex: Female

DRUGS (12)
  1. LIOTHYRONINE [Concomitant]
     Active Substance: LIOTHYRONINE
  2. AMLODIPINE [Concomitant]
     Active Substance: AMLODIPINE BESYLATE
  3. VITAMIN C [Concomitant]
     Active Substance: ASCORBIC ACID
  4. ALIGN [Concomitant]
     Active Substance: BIFIDOBACTERIUM LONGUM SUBSP. INFANTIS
  5. XANAX [Concomitant]
     Active Substance: ALPRAZOLAM
  6. ASPIRIN. [Concomitant]
     Active Substance: ASPIRIN
  7. MULTIVITAMIN [Concomitant]
     Active Substance: VITAMINS
  8. MILK THISTLE [Concomitant]
     Active Substance: MILK THISTLE
  9. THYROLAR [Concomitant]
     Active Substance: LEVOTHYROXINE SODIUM\LIOTHYRONINE SODIUM
  10. FISH OIL [Concomitant]
     Active Substance: FISH OIL
  11. TRAZODONE [Concomitant]
     Active Substance: TRAZODONE HYDROCHLORIDE
  12. HARVONI [Suspect]
     Active Substance: LEDIPASVIR\SOFOSBUVIR
     Indication: HEPATITIS C
     Dosage: 1 TABLET QD PO
     Route: 048
     Dates: start: 201603

REACTIONS (3)
  - Fatigue [None]
  - Nausea [None]
  - Sleep disorder [None]

NARRATIVE: CASE EVENT DATE: 20160314
